FAERS Safety Report 8351546-5 (Version None)
Quarter: 2012Q2

REPORT INFORMATION
  Report Type: 
  Country: None (occurrence: None)
  Receive Date: 20120511
  Receipt Date: 20120501
  Transmission Date: 20120825
  Serious: Yes (Hospitalization)
  Sender: FDA-Public Use
  Company Number: US-BIOGENIDEC-2012BI010648

PATIENT
  Age: 71 Year
  Sex: Female

DRUGS (1)
  1. TYSABRI [Suspect]
     Indication: MULTIPLE SCLEROSIS
     Route: 042
     Dates: start: 20110526, end: 20120209

REACTIONS (7)
  - LUNG NEOPLASM [None]
  - GAIT DISTURBANCE [None]
  - URINARY INCONTINENCE [None]
  - MULTIPLE SCLEROSIS RELAPSE [None]
  - FALL [None]
  - URINE ODOUR ABNORMAL [None]
  - MICTURITION URGENCY [None]
